FAERS Safety Report 5565217-1 (Version None)
Quarter: 2007Q4

REPORT INFORMATION
  Report Type: 
  Country: None (occurrence: None)
  Receive Date: 20071218
  Receipt Date: 20071207
  Transmission Date: 20080405
  Serious: Yes (Other)
  Sender: FDA-Public Use
  Company Number: BE-AVENTIS-200715976EU

PATIENT
  Age: 83 Year
  Sex: Female
  Weight: 65 kg

DRUGS (2)
  1. CLEXANE [Suspect]
     Route: 058
     Dates: start: 20071121, end: 20071130
  2. REMERGON [Suspect]
     Indication: INSOMNIA
     Route: 048
     Dates: start: 20071001, end: 20071130

REACTIONS (4)
  - ERYTHEMA MULTIFORME [None]
  - MOUTH ULCERATION [None]
  - PRURITUS [None]
  - RASH [None]
